FAERS Safety Report 7685684-7 (Version None)
Quarter: 2011Q3

REPORT INFORMATION
  Report Type: 
  Country: None (occurrence: None)
  Receive Date: 20110815
  Receipt Date: 20110815
  Transmission Date: 20111222
  Serious: Yes (Life-Threatening, Other)
  Sender: FDA-Public Use
  Company Number: None

PATIENT
  Age: 77 Year
  Sex: Female
  Weight: 83.4619 kg

DRUGS (1)
  1. NITROFURANTOIN [Suspect]
     Indication: URINARY TRACT INFECTION
     Dosage: ONE 1 X DAILY 10 DAYS
     Dates: start: 20110605, end: 20110612

REACTIONS (9)
  - SWOLLEN TONGUE [None]
  - RASH [None]
  - FEELING COLD [None]
  - RETCHING [None]
  - MALAISE [None]
  - PALATAL OEDEMA [None]
  - CHILLS [None]
  - OROPHARYNGEAL PAIN [None]
  - SINUSITIS [None]
